FAERS Safety Report 5018987-5 (Version None)
Quarter: 2006Q2

REPORT INFORMATION
  Report Type: 
  Country: None (occurrence: None)
  Receive Date: 20060606
  Receipt Date: 20060601
  Transmission Date: 20061013
  Serious: Yes (Other)
  Sender: FDA-Public Use
  Company Number: US-GLAXOSMITHKLINE-A0607586A

PATIENT
  Age: 74 Year
  Sex: Female

DRUGS (2)
  1. LOTRONEX [Suspect]
     Indication: IRRITABLE BOWEL SYNDROME
     Dosage: 1MG PER DAY
     Route: 048
  2. COUGH SUPPRESSANT [Concomitant]

REACTIONS (3)
  - COLITIS ISCHAEMIC [None]
  - CONSTIPATION [None]
  - HAEMATOCHEZIA [None]
